FAERS Safety Report 19057780 (Version 1)
Quarter: 2021Q1

REPORT INFORMATION
  Report Type: Spontaneous
  Country: PT (occurrence: PT)
  Receive Date: 20210324
  Receipt Date: 20210324
  Transmission Date: 20210420
  Serious: Yes (Life-Threatening, Hospitalization, Disabling, Other)
  Sender: FDA-Public Use
  Company Number: PT-GILEAD-2020-0489548

PATIENT
  Age: 52 Year
  Sex: Male
  Weight: 160 kg

DRUGS (17)
  1. MIDAZOLAM. [Concomitant]
     Active Substance: MIDAZOLAM
  2. VEKLURY [Suspect]
     Active Substance: REMDESIVIR
     Indication: COVID-19 PNEUMONIA
     Dosage: 200 MG, ONCE
     Route: 042
     Dates: start: 20200723, end: 20200723
  3. SODIUM ENOXAPARIN [Concomitant]
     Active Substance: ENOXAPARIN SODIUM
     Dosage: 60 MG, UNK
     Route: 058
     Dates: start: 20200729
  4. SALBUTAMOL [Concomitant]
     Active Substance: ALBUTEROL
     Dosage: 4
     Route: 055
     Dates: start: 20200729
  5. VEKLURY [Suspect]
     Active Substance: REMDESIVIR
     Dosage: 100 MG, QD
     Route: 042
     Dates: start: 20200724, end: 20200730
  6. CLOPIDOGREL [Concomitant]
     Active Substance: CLOPIDOGREL BISULFATE
     Dosage: 75 MG, UNK
     Route: 048
     Dates: start: 20200729
  7. CALCIUM GLUCONATE. [Concomitant]
     Active Substance: CALCIUM GLUCONATE
     Dosage: 10 ML, UNK
     Route: 042
     Dates: start: 20200731
  8. ACTRAPID [Concomitant]
     Active Substance: INSULIN HUMAN
  9. LAXODAL [Concomitant]
  10. ALFENTANIL. [Concomitant]
     Active Substance: ALFENTANIL
     Dosage: 5 MG, UNK
     Route: 042
     Dates: start: 20200729
  11. ACETYLSALICYLIC ACID [Concomitant]
     Active Substance: ASPIRIN
     Dosage: 100 MG, UNK
     Route: 048
     Dates: start: 20200729
  12. AMLODIPINE [Concomitant]
     Active Substance: AMLODIPINE BESYLATE
     Dosage: 5 MG, UNK
     Route: 048
     Dates: start: 20200801
  13. LACTULOSE. [Concomitant]
     Active Substance: LACTULOSE
  14. IPRATROPIUM BROMIDE. [Concomitant]
     Active Substance: IPRATROPIUM BROMIDE
     Dosage: 2
     Route: 055
     Dates: start: 20200729
  15. PROPOFOL. [Concomitant]
     Active Substance: PROPOFOL
  16. ERYTHROMYCIN. [Concomitant]
     Active Substance: ERYTHROMYCIN
  17. DULCOLAX (BISACODYL) [Concomitant]
     Active Substance: BISACODYL

REACTIONS (1)
  - Acute kidney injury [Recovered/Resolved]

NARRATIVE: CASE EVENT DATE: 20200729
